FAERS Safety Report 11672404 (Version 1)
Quarter: 2015Q4

REPORT INFORMATION
  Report Type: Spontaneous
  Country: US (occurrence: US)
  Receive Date: 20151027
  Receipt Date: 20151027
  Transmission Date: 20160304
  Serious: Yes (Hospitalization, Other)
  Sender: FDA-Public Use
  Company Number: US-ELI_LILLY_AND_COMPANY-US201006006522

PATIENT
  Sex: Female

DRUGS (9)
  1. METOPROLOL [Concomitant]
     Active Substance: METOPROLOL
     Dosage: 5 MG, UNK
  2. VYTORIN [Concomitant]
     Active Substance: EZETIMIBE\SIMVASTATIN
     Dosage: 30 MG, UNK
  3. NITROBID [Concomitant]
     Dosage: 2 %, UNK
  4. NIFEDIPINE ER [Concomitant]
     Active Substance: NIFEDIPINE
     Dosage: 60 MG, UNK
  5. LEXAPRO [Concomitant]
     Active Substance: ESCITALOPRAM OXALATE
     Dosage: 5 MG, UNK
  6. FORTEO [Suspect]
     Active Substance: TERIPARATIDE
     Indication: BONE DISORDER
     Dosage: 20 UG, DAILY (1/D)
  7. ACTOS [Concomitant]
     Active Substance: PIOGLITAZONE HYDROCHLORIDE
     Dosage: 30 MG, UNK
  8. CALCITONIN-SALMON [Concomitant]
     Active Substance: CALCITONIN SALMON
     Dosage: 200 IU, UNK
  9. ASPIRIN. [Concomitant]
     Active Substance: ASPIRIN
     Dosage: 81 MG, UNK

REACTIONS (2)
  - Hypertension [Recovered/Resolved]
  - Syncope [Unknown]
